FAERS Safety Report 4619460-6 (Version None)
Quarter: 2005Q2

REPORT INFORMATION
  Report Type: 
  Country: None (occurrence: None)
  Receive Date: 20050321
  Receipt Date: 20040521
  Transmission Date: 20051028
  Serious: Yes (Hospitalization)
  Sender: FDA-Public Use
  Company Number: 2004-05-1665

PATIENT
  Age: 34 Year
  Sex: Male
  Weight: 108.8633 kg

DRUGS (3)
  1. PEG-INTRON [Suspect]
     Indication: HEPATITIS C VIRUS
     Dosage: 150 MCG QW SUBCUTANEOUS
     Route: 058
     Dates: start: 20030923
  2. REBETOL [Suspect]
     Indication: HEPATITIS C VIRUS
     Dosage: 1200 MG QD ORAL
     Route: 048
     Dates: start: 20030923
  3. METFORMIN [Concomitant]

REACTIONS (1)
  - CHEST PAIN [None]
